FAERS Safety Report 6697777-1 (Version None)
Quarter: 2010Q2

REPORT INFORMATION
  Report Type: 
  Country: None (occurrence: None)
  Receive Date: 20100423
  Receipt Date: 20100408
  Transmission Date: 20101027
  Serious: Yes (Other)
  Sender: FDA-Public Use
  Company Number: 2010EU001394

PATIENT
  Age: 44 Year
  Sex: Female
  Weight: 57 kg

DRUGS (1)
  1. SOLIFENACIN SUCCINATE (VESICARE) [Suspect]
     Indication: POLLAKIURIA
     Dosage: 10 MG, UID/QD, ORAL
     Route: 048
     Dates: start: 20100202, end: 20100208

REACTIONS (1)
  - PALPITATIONS [None]
